FAERS Safety Report 7644424-8 (Version None)
Quarter: 2011Q3

REPORT INFORMATION
  Report Type: 
  Country: None (occurrence: None)
  Receive Date: 20110729
  Receipt Date: 20110725
  Transmission Date: 20111222
  Serious: Yes (Death)
  Sender: FDA-Public Use
  Company Number: JP-PFIZER INC-2011169262

PATIENT
  Age: 12 Year
  Sex: Male

DRUGS (1)
  1. VFEND [Suspect]

REACTIONS (1)
  - LIVER FUNCTION TEST ABNORMAL [None]
